FAERS Safety Report 25893221 (Version 1)
Quarter: 2025Q4

REPORT INFORMATION
  Report Type: Other
  Country: GB (occurrence: GB)
  Receive Date: 20251008
  Receipt Date: 20251008
  Transmission Date: 20260117
  Serious: Yes (Other)
  Sender: NOVITIUM PHARMA
  Company Number: GB-NOVITIUM PHARMA-000026

PATIENT
  Age: 40 Year
  Sex: Female

DRUGS (1)
  1. SULFAMETHOXAZOLE\TRIMETHOPRIM [Suspect]
     Active Substance: SULFAMETHOXAZOLE\TRIMETHOPRIM
     Indication: Cerebral toxoplasmosis

REACTIONS (2)
  - Immune reconstitution inflammatory syndrome [Unknown]
  - Seizure [Unknown]
